FAERS Safety Report 9306915 (Version 1)
Quarter: 2013Q1

REPORT INFORMATION
  Report Type: Spontaneous
  Country: US (occurrence: None)
  Receive Date: 20130201
  Receipt Date: 20130201
  Transmission Date: 20140127
  Serious: Yes (Hospitalization)
  Sender: FDA-Public Use
  Company Number: 2012DGN00371

PATIENT
  Age: 25 Year
  Sex: Female
  Weight: 107.9 kg

DRUGS (2)
  1. BRENTUXIMAB VEDOTIN [Suspect]
     Indication: HODGKIN^S DISEASE
     Dosage: Q14D
     Dates: start: 20120507
  2. LEVAQUIN (LEVOFLOXACIN) [Concomitant]

REACTIONS (1)
  - Bronchitis [None]
